FAERS Safety Report 12167113 (Version 1)
Quarter: 2016Q1

REPORT INFORMATION
  Report Type: Spontaneous
  Country: US (occurrence: US)
  Receive Date: 20160310
  Receipt Date: 20160310
  Transmission Date: 20160526
  Serious: No
  Sender: FDA-Public Use
  Company Number: US-009507513-1603USA002953

PATIENT
  Sex: Female

DRUGS (1)
  1. ETONOGESTREL IMPLANT- UNKNOWN [Suspect]
     Active Substance: ETONOGESTREL
     Indication: CONTRACEPTION
     Dosage: ONE TIME
     Route: 059

REACTIONS (5)
  - Smear cervix abnormal [Unknown]
  - Sexually transmitted disease [Unknown]
  - Skin disorder [Unknown]
  - Anogenital warts [Unknown]
  - Colposcopy [Unknown]
